FAERS Safety Report 5629566-0 (Version None)
Quarter: 2008Q1

REPORT INFORMATION
  Report Type: 
  Country: None (occurrence: None)
  Receive Date: 20080218
  Receipt Date: 20080206
  Transmission Date: 20080703
  Serious: Yes (Other)
  Sender: FDA-Public Use
  Company Number: US-AMGEN-QUU263161

PATIENT
  Sex: Female

DRUGS (3)
  1. ENBREL [Suspect]
     Indication: PSORIASIS
     Route: 058
     Dates: start: 20050501, end: 20071201
  2. NORVASC [Concomitant]
  3. LABETALOL HCL [Concomitant]

REACTIONS (2)
  - FATIGUE [None]
  - UVEITIS [None]
